FAERS Safety Report 7224680-0 (Version None)
Quarter: 2011Q1

REPORT INFORMATION
  Report Type: 
  Country: None (occurrence: None)
  Receive Date: 20110104
  Receipt Date: 20101221
  Transmission Date: 20110831
  Serious: Yes (Hospitalization)
  Sender: FDA-Public Use
  Company Number: 1000016920

PATIENT
  Age: 66 Year
  Sex: Female

DRUGS (7)
  1. ISMO (ISOSORBIDE MONONITRATE) (ISOSORBIDE) [Concomitant]
  2. CITALOPRAM HYDROBROMIDE [Suspect]
     Indication: DEPRESSION
     Dosage: 20 MG (20 MG, 1 IN 1 D), ORAL
     Route: 048
     Dates: end: 20100722
  3. STEMETIL (PROCHLORPERAZINE) (PROCHLORPERAZINE) [Concomitant]
  4. SIMVASTATIN [Concomitant]
  5. CLOZAPINE [Suspect]
     Indication: SCHIZOPHRENIA
     Dosage: ORAL
     Route: 048
     Dates: start: 20091002, end: 20101129
  6. ZOPICLONE (ZOPICLONE) (ZOPICLONE) [Concomitant]
  7. CLOZAPINE [Suspect]
     Indication: SCHIZOPHRENIA
     Dosage: ORAL
     Route: 048
     Dates: start: 20101203

REACTIONS (7)
  - OESOPHAGEAL ULCER [None]
  - OESOPHAGITIS [None]
  - FALL [None]
  - LOSS OF CONSCIOUSNESS [None]
  - HAEMATEMESIS [None]
  - URINARY TRACT INFECTION [None]
  - DIZZINESS [None]
